FAERS Safety Report 7353992-5 (Version None)
Quarter: 2011Q1

REPORT INFORMATION
  Report Type: 
  Country: None (occurrence: None)
  Receive Date: 20110315
  Receipt Date: 20110214
  Transmission Date: 20110831
  Serious: No
  Sender: FDA-Public Use
  Company Number: US-BAYER-2011-015165

PATIENT
  Sex: Male
  Weight: 91 kg

DRUGS (9)
  1. NEXIUM [Concomitant]
     Dosage: 2 DF, QD
     Route: 048
  2. ZOCOR [Concomitant]
     Route: 048
  3. ALEVE (CAPLET) [Suspect]
     Dosage: 2 DF, BID
     Route: 048
  4. REQUIP [Concomitant]
  5. ADVAIR DISKUS 100/50 [Concomitant]
     Dosage: 1 PUFF(S), BID
     Route: 055
  6. SPIRIVA [Concomitant]
     Dosage: 1 PUFF(S), QD
     Route: 055
  7. UROXATRAL [Concomitant]
     Dosage: 2 DF, QD
  8. DILTIAZEM [Concomitant]
     Route: 048
  9. FEXOFENADINE [Concomitant]
     Route: 048

REACTIONS (1)
  - NO ADVERSE EVENT [None]
